FAERS Safety Report 24581809 (Version 2)
Quarter: 2024Q4

REPORT INFORMATION
  Report Type: Report from Study
  Country: IN (occurrence: IN)
  Receive Date: 20241105
  Receipt Date: 20241202
  Transmission Date: 20250115
  Serious: Yes (Death, Hospitalization)
  Sender: ROCHE
  Company Number: IN-ROCHE-10000121041

PATIENT
  Age: 73 Year
  Sex: Male

DRUGS (1)
  1. TECENTRIQ [Suspect]
     Active Substance: ATEZOLIZUMAB
     Indication: Small cell lung cancer
     Route: 042
     Dates: start: 20240620

REACTIONS (4)
  - Pneumonia [Unknown]
  - Pneumonia fungal [Unknown]
  - Neoplasm malignant [Fatal]
  - Lung disorder [Fatal]
